FAERS Safety Report 7715833-3 (Version None)
Quarter: 2011Q3

REPORT INFORMATION
  Report Type: 
  Country: None (occurrence: None)
  Receive Date: 20110829
  Receipt Date: 20110829
  Transmission Date: 20111222
  Serious: Yes (Hospitalization, Disabling)
  Sender: FDA-Public Use
  Company Number: None

PATIENT
  Age: 13 Year
  Sex: Female
  Weight: 48.987 kg

DRUGS (2)
  1. MINOCYCLINE HCL [Suspect]
     Indication: ACNE
     Dosage: 1 CAPSULE
     Route: 048
     Dates: start: 20101028, end: 20101202
  2. MINOCYCLINE HCL [Concomitant]
     Dosage: 1 CAPSULE
     Route: 048
     Dates: start: 20110712, end: 20110720

REACTIONS (1)
  - DECREASED APPETITE [None]
